FAERS Safety Report 17351783 (Version 1)
Quarter: 2020Q1

REPORT INFORMATION
  Report Type: Spontaneous
  Country: CA (occurrence: CA)
  Receive Date: 20200130
  Receipt Date: 20200130
  Transmission Date: 20200409
  Serious: Yes (Other)
  Sender: FDA-Public Use
  Company Number: CA-FERRINGPH-2019FE03697

PATIENT
  Age: 75 Year
  Sex: Male

DRUGS (1)
  1. FIRMAGON [Suspect]
     Active Substance: DEGARELIX ACETATE
     Indication: PROSTATE CANCER
     Dosage: 80 MG, MONTHLY
     Route: 058
     Dates: start: 20180911, end: 20181213

REACTIONS (3)
  - Pulmonary thrombosis [Unknown]
  - Pain [Unknown]
  - Chills [Unknown]

NARRATIVE: CASE EVENT DATE: 2018
